FAERS Safety Report 8129772-X (Version None)
Quarter: 2011Q4

REPORT INFORMATION
  Report Type: 
  Country: None (occurrence: None)
  Receive Date: 20111227
  Receipt Date: 20110915
  Transmission Date: 20120403
  Serious: No
  Sender: FDA-Public Use
  Company Number: PHHY2011US28935

PATIENT
  Age: 40 Year
  Sex: Female
  Weight: 77.2 kg

DRUGS (4)
  1. VITAMIN D (ERGOCALCIFEROL) ONGOING [Concomitant]
  2. IBUPROFEN (IBUPROFEN) TABLET --/--/2010 TO ONGOING [Concomitant]
  3. NEURONTIN (GABAPENTIN), 600 MG --/--/2009 TO ONGOING [Concomitant]
  4. GILENYA [Suspect]
     Indication: RELAPSING-REMITTING MULTIPLE SCLEROSIS
     Dosage: 0.5 MG, QD, ORAL
     Route: 048
     Dates: start: 20110405, end: 20110901

REACTIONS (7)
  - BURNING SENSATION [None]
  - NAUSEA [None]
  - FEELING HOT [None]
  - SENSORY LOSS [None]
  - MUSCULAR WEAKNESS [None]
  - ASTHENIA [None]
  - FALL [None]
